FAERS Safety Report 19830409 (Version 1)
Quarter: 2021Q3

REPORT INFORMATION
  Report Type: Spontaneous
  Country: US (occurrence: US)
  Receive Date: 20210915
  Receipt Date: 20210915
  Transmission Date: 20211014
  Serious: Yes (Disabling)
  Sender: FDA-Public Use
  Company Number: None

PATIENT
  Age: 39 Year
  Sex: Female
  Weight: 91.35 kg

DRUGS (9)
  1. FLUTICASONE PROPIONATE NASAL SPRAY 50 MCG [Suspect]
     Active Substance: FLUTICASONE PROPIONATE
     Indication: NASAL POLYPS
     Dosage: ?          QUANTITY:2 PUFF(S);?
     Route: 055
     Dates: start: 20210720, end: 20210730
  2. MIDODRINE 5MG 1 TID [Concomitant]
  3. SUMATRIPTAN 25MG MYLAN [Concomitant]
     Active Substance: SUMATRIPTAN
  4. VITAMIN D3 WITH K?2 1 PD [Concomitant]
  5. MAGNESIUM CITRATE 200MG 2 PD [Concomitant]
  6. PROPRANOLOL 10MG 1 TID [Concomitant]
  7. PROGESTERONE 100MG 1PD [Concomitant]
  8. ADDERALL 10MG 1 BID [Concomitant]
  9. SALT STICK POTASSIUM/SODIUM 1 TID [Concomitant]

REACTIONS (4)
  - Musculoskeletal disorder [None]
  - Tic [None]
  - Depression [None]
  - Fatigue [None]

NARRATIVE: CASE EVENT DATE: 20210720
